FAERS Safety Report 9960074 (Version 2)
Quarter: 2014Q1

REPORT INFORMATION
  Report Type: Report from Study
  Country: US (occurrence: US)
  Receive Date: 20140305
  Receipt Date: 20140305
  Transmission Date: 20141002
  Serious: Yes (Other)
  Sender: FDA-Public Use
  Company Number: US-ABBVIE-07P-163-0417763-00

PATIENT
  Age: 76 Year
  Sex: Female
  Weight: 72.19 kg

DRUGS (4)
  1. HUMIRA 40 MG/0.8 ML PEN [Suspect]
     Indication: RHEUMATOID ARTHRITIS
     Route: 058
     Dates: start: 200707
  2. HUMIRA 40 MG/0.8 ML PEN [Suspect]
     Route: 058
  3. SYNTHROID [Concomitant]
     Indication: THYROID DISORDER
  4. COZAAR [Concomitant]
     Indication: HYPERTENSION

REACTIONS (7)
  - Rheumatoid arthritis [Unknown]
  - Injection site reaction [Not Recovered/Not Resolved]
  - Injection site bruising [Unknown]
  - Injection site pain [Not Recovered/Not Resolved]
  - Injection site pain [Unknown]
  - Incorrect dose administered [Recovered/Resolved]
  - Injection site haemorrhage [Unknown]
